FAERS Safety Report 5804070-5 (Version None)
Quarter: 2008Q3

REPORT INFORMATION
  Report Type: 
  Country: None (occurrence: None)
  Receive Date: 20080709
  Receipt Date: 20080707
  Transmission Date: 20090109
  Serious: Yes (Other)
  Sender: FDA-Public Use
  Company Number: IT-RANBAXY-2008RR-16245

PATIENT

DRUGS (3)
  1. CLARITHROMICINA RANBAXY ITALIA 500MG COMPRESSE RIVESTITE CON FILM [Suspect]
     Indication: HELICOBACTER INFECTION
     Dosage: 1 G, QD
     Route: 048
     Dates: start: 20080628, end: 20080630
  2. AMOXICILLIN PENSA 1 G TABLETS [Suspect]
     Indication: HELICOBACTER INFECTION
     Dosage: 2 G, QD
     Route: 048
     Dates: start: 20080628, end: 20080630
  3. LUCEN 40 MG [Suspect]
     Indication: HELICOBACTER INFECTION
     Dosage: 80 MG, QD
     Route: 048
     Dates: start: 20080628, end: 20080630

REACTIONS (2)
  - DIARRHOEA HAEMORRHAGIC [None]
  - HAEMATOCHEZIA [None]
